FAERS Safety Report 5024982-2 (Version None)
Quarter: 2006Q2

REPORT INFORMATION
  Report Type: 
  Country: None (occurrence: None)
  Receive Date: 20060607
  Receipt Date: 20060523
  Transmission Date: 20061013
  Serious: Yes (Death)
  Sender: FDA-Public Use
  Company Number: 2006-DE-02630GD

PATIENT
  Sex: Male

DRUGS (2)
  1. MORPHINE [Suspect]
     Indication: PROCEDURAL PAIN
     Dosage: IV BOLUSES OF 2 MG REPEATEDLY EVERY 5 MIN UNTIL PAIN RATING SALE {2, THEN PATIENT-CONTROLLED ANALGES
     Route: 042
  2. SUFENTANIL (SUFENTANIL) [Suspect]
     Indication: GENERAL ANAESTHESIA
     Dosage: INTRAOPERATIVE CONTINOUS INFUSION

REACTIONS (1)
  - POST PROCEDURAL COMPLICATION [None]
